FAERS Safety Report 6239332-3 (Version None)
Quarter: 2009Q2

REPORT INFORMATION
  Report Type: 
  Country: None (occurrence: None)
  Receive Date: 20090622
  Receipt Date: 20090610
  Transmission Date: 20091009
  Serious: Yes (Other)
  Sender: FDA-Public Use
  Company Number: BE-PFIZER INC-2009197344

PATIENT
  Age: 68 Year

DRUGS (11)
  1. BLINDED *PLACEBO [Suspect]
     Indication: SYSTEMIC CANDIDA
  2. BLINDED ANIDULAFUNGIN [Suspect]
     Indication: SYSTEMIC CANDIDA
  3. VORICONAZOLE [Suspect]
     Indication: ASPERGILLOSIS
     Dosage: FREQUENCY: 2X/DAY, EVERY DAY;
     Route: 042
     Dates: start: 20090320, end: 20090326
  4. VORICONAZOLE [Suspect]
     Dosage: FREQUENCY: 2X/DAY, EVERY DAY;
     Route: 048
     Dates: start: 20090327, end: 20090408
  5. ESOMEPRAZOLE [Concomitant]
     Route: 048
     Dates: start: 20090321
  6. LORMETAZEPAM [Concomitant]
     Route: 048
     Dates: start: 20090321
  7. IBUPROFEN [Concomitant]
     Route: 048
     Dates: start: 20090325, end: 20090401
  8. COLCHICINE [Concomitant]
     Route: 048
     Dates: start: 20090325, end: 20090402
  9. POTASSIUM CHLORIDE [Concomitant]
     Route: 048
     Dates: start: 20090327, end: 20090401
  10. CEFEPIME HYDROCHLORIDE [Concomitant]
     Dates: start: 20090404
  11. DEXTROMETHORPHAN [Concomitant]
     Route: 048
     Dates: start: 20090303

REACTIONS (1)
  - ENCEPHALOPATHY [None]
